FAERS Safety Report 7915071-5 (Version None)
Quarter: 2011Q4

REPORT INFORMATION
  Report Type: 
  Country: None (occurrence: None)
  Receive Date: 20111115
  Receipt Date: 20111111
  Transmission Date: 20120403
  Serious: Yes (Other)
  Sender: FDA-Public Use
  Company Number: GB-PFIZER INC-2011249646

PATIENT
  Age: 31 Year
  Sex: Male

DRUGS (7)
  1. OMEPRAZOLE [Concomitant]
     Dosage: 20 MG, 2X/DAY
     Route: 048
  2. CITALOPRAM [Concomitant]
     Indication: DEPRESSION
     Dosage: 60 MG, 1X/DAY
     Route: 048
  3. MIRTAZAPINE [Concomitant]
     Indication: DEPRESSION
     Dosage: 45 MG, 1X/DAY
     Route: 048
  4. LYRICA [Suspect]
     Indication: ANXIETY
     Dosage: 450MG DAILY
     Route: 048
     Dates: start: 20110913
  5. CLOZAPINE [Suspect]
     Indication: SCHIZOPHRENIA, PARANOID TYPE
     Dosage: 125 MG, 2X/DAY
     Route: 048
  6. DIAZEPAM [Concomitant]
     Dosage: 4.5 MG, 3X/DAY
  7. CORSODYL [Concomitant]
     Dosage: 10 ML, 2X/DAY
     Route: 048

REACTIONS (6)
  - DYSARTHRIA [None]
  - GAIT DISTURBANCE [None]
  - ENURESIS [None]
  - TREMOR [None]
  - MUSCLE TWITCHING [None]
  - ATAXIA [None]
